FAERS Safety Report 8777302 (Version 3)
Quarter: 2012Q4

REPORT INFORMATION
  Report Type: 
  Country: US (occurrence: US)
  Receive Date: 20120910
  Receipt Date: 20121210
  Transmission Date: 20130627
  Serious: No
  Sender: FDA-Public Use
  Company Number: US-009507513-1209USA001688

PATIENT
  Age: 19 Year
  Sex: Female
  Weight: 66.67 kg

DRUGS (2)
  1. IMPLANON [Suspect]
     Indication: CONTRACEPTION
     Dosage: 68 mg subdermal for 3 years
     Route: 059
     Dates: start: 20120601
  2. ADDERALL TABLETS [Concomitant]

REACTIONS (3)
  - Metrorrhagia [Not Recovered/Not Resolved]
  - Dysfunctional uterine bleeding [Not Recovered/Not Resolved]
  - Metrorrhagia [Not Recovered/Not Resolved]
